FAERS Safety Report 16926286 (Version 2)
Quarter: 2019Q4

REPORT INFORMATION
  Report Type: Spontaneous
  Country: US (occurrence: US)
  Receive Date: 20191016
  Receipt Date: 20191017
  Transmission Date: 20200122
  Serious: No
  Sender: FDA-Public Use
  Company Number: US-BAYER-2019-186988

PATIENT
  Age: 77 Year
  Sex: Female
  Weight: 54.42 kg

DRUGS (1)
  1. MIRALAX [Suspect]
     Active Substance: POLYETHYLENE GLYCOL 3350
     Indication: GASTROINTESTINAL DISORDER
     Dosage: 1 DF, ON AND OFF
     Route: 048
     Dates: start: 2018

REACTIONS (1)
  - Expired product administered [None]

NARRATIVE: CASE EVENT DATE: 2019
